FAERS Safety Report 6664619-X (Version None)
Quarter: 2010Q1

REPORT INFORMATION
  Report Type: 
  Country: None (occurrence: None)
  Receive Date: 20100330
  Receipt Date: 20091126
  Transmission Date: 20100710
  Serious: Yes (Hospitalization)
  Sender: FDA-Public Use
  Company Number: 6056040

PATIENT
  Sex: Female

DRUGS (2)
  1. LEVOTHYROXINE SODIUM [Suspect]
     Indication: GOITRE
     Dosage: WHE SHE DID NOT TAKE L-THYROXINE 2-3 YEARS AGO
     Route: 048
  2. L-THYROXINE SERB (ORAL SOLUTION) (LEVOTHYROXINE SODIUM) [Suspect]
     Indication: GOITRE
     Dosage: 4 DROPS
     Route: 048
     Dates: start: 19880101

REACTIONS (7)
  - FATIGUE [None]
  - FEELING OF BODY TEMPERATURE CHANGE [None]
  - MALAISE [None]
  - MIGRAINE [None]
  - NAUSEA [None]
  - TACHYCARDIA [None]
  - WEIGHT INCREASED [None]
